FAERS Safety Report 4578025-5 (Version None)
Quarter: 2005Q1

REPORT INFORMATION
  Report Type: 
  Country: None (occurrence: None)
  Receive Date: 20050209
  Receipt Date: 20031208
  Transmission Date: 20050727
  Serious: Yes (Death, Hospitalization)
  Sender: FDA-Public Use
  Company Number: 05-021

PATIENT
  Sex: Female

DRUGS (4)
  1. CAPOTEN [Suspect]
     Indication: HYPERTENSION
  2. SPIROLACTONE [Concomitant]
  3. FRUSEMIDE [Concomitant]
  4. AMILORIDE [Concomitant]

REACTIONS (3)
  - ASTHMA [None]
  - PHARMACEUTICAL PRODUCT COMPLAINT [None]
  - THERAPY NON-RESPONDER [None]
